FAERS Safety Report 6064469-1 (Version None)
Quarter: 2009Q1

REPORT INFORMATION
  Report Type: 
  Country: None (occurrence: None)
  Receive Date: 20090204
  Receipt Date: 20090120
  Transmission Date: 20090719
  Serious: Yes (Disabling)
  Sender: FDA-Public Use
  Company Number: CL-GENENTECH-276205

PATIENT
  Sex: Female

DRUGS (2)
  1. MABTHERA [Suspect]
     Indication: RHEUMATOID ARTHRITIS
     Dosage: 1 G, Q2W
     Route: 042
     Dates: start: 20081216, end: 20090105
  2. MEDICATION (UNK INGREDIENT) [Concomitant]
     Indication: PREMEDICATION

REACTIONS (1)
  - INFLUENZA LIKE ILLNESS [None]
